FAERS Safety Report 25028798 (Version 1)
Quarter: 2025Q1

REPORT INFORMATION
  Report Type: Report from Study
  Country: US (occurrence: US)
  Receive Date: 20250302
  Receipt Date: 20250302
  Transmission Date: 20250408
  Serious: Yes (Other)
  Sender: ABBVIE
  Company Number: US-ABBVIE-6154674

PATIENT
  Age: 61 Year
  Sex: Female

DRUGS (1)
  1. HUMIRA [Suspect]
     Active Substance: ADALIMUMAB
     Indication: Rheumatoid arthritis
     Route: 058
     Dates: start: 20240319

REACTIONS (10)
  - Endotracheal intubation [Unknown]
  - Toe operation [Recovering/Resolving]
  - Illness [Not Recovered/Not Resolved]
  - Skin operation [Unknown]
  - Influenza [Unknown]
  - Atypical pneumonia [Unknown]
  - Throat irritation [Unknown]
  - Oral candidiasis [Unknown]
  - Medical device pain [Unknown]
  - Respiratory tract congestion [Unknown]

NARRATIVE: CASE EVENT DATE: 20250101
